FAERS Safety Report 11331907 (Version 1)
Quarter: 2015Q3

REPORT INFORMATION
  Report Type: Spontaneous
  Country: US (occurrence: US)
  Receive Date: 20150803
  Receipt Date: 20150803
  Transmission Date: 20151125
  Serious: Yes (Other)
  Sender: FDA-Public Use
  Company Number: US-ELI_LILLY_AND_COMPANY-US200805002014

PATIENT
  Age: 47 Year
  Sex: Female

DRUGS (3)
  1. KLONOPIN [Concomitant]
     Active Substance: CLONAZEPAM
     Indication: ANXIETY
     Dosage: 17 MG, UNK
  2. ZYPREXA [Suspect]
     Active Substance: OLANZAPINE
     Indication: BIPOLAR DISORDER
     Dosage: 30 MG, UNK
     Dates: end: 20080507
  3. LITHIUM. [Concomitant]
     Active Substance: LITHIUM
     Indication: BIPOLAR DISORDER
     Dosage: 450 MG, UNK

REACTIONS (4)
  - Muscle spasms [Unknown]
  - Seizure [Unknown]
  - Akathisia [Unknown]
  - Prescribed overdose [Recovered/Resolved]
